FAERS Safety Report 6212335-0 (Version None)
Quarter: 2009Q2

REPORT INFORMATION
  Report Type: 
  Country: None (occurrence: None)
  Receive Date: 20090529
  Receipt Date: 20090518
  Transmission Date: 20091009
  Serious: Yes (Hospitalization)
  Sender: FDA-Public Use
  Company Number: ALK_00863_2009

PATIENT
  Age: 36 Year
  Sex: Male

DRUGS (2)
  1. VIVITROL [Suspect]
     Indication: ALCOHOLISM
     Dosage: INTRAMUSCULAR
     Route: 030
     Dates: start: 20090404
  2. PHENAZEPAM (PHENAZEPAM) [Suspect]
     Indication: DRUG USE FOR UNKNOWN INDICATION

REACTIONS (1)
  - HALLUCINATION [None]
